FAERS Safety Report 4355816-7 (Version None)
Quarter: 2004Q2

REPORT INFORMATION
  Report Type: 
  Country: None (occurrence: None)
  Receive Date: 20040505
  Receipt Date: 20040423
  Transmission Date: 20050107
  Serious: Yes (Other)
  Sender: FDA-Public Use
  Company Number: 2004027897

PATIENT
  Age: 64 Year
  Sex: Female
  Weight: 54.4316 kg

DRUGS (5)
  1. LIPITOR [Suspect]
     Indication: BLOOD CHOLESTEROL INCREASED
     Dosage: 10 MG DAILY ORAL
     Route: 048
     Dates: end: 20040409
  2. ALENDRONATE SODIUM [Suspect]
     Indication: OSTEOPOROSIS PROPHYLAXIS
     Dates: end: 20030101
  3. RAMIPRIL [Concomitant]
  4. ESTROGENIC SUBSTANCE [Concomitant]
  5. DIURETICS [Concomitant]

REACTIONS (9)
  - ABDOMINAL DISTENSION [None]
  - ERUCTATION [None]
  - FEMUR FRACTURE [None]
  - FLATULENCE [None]
  - INJURY [None]
  - MALAISE [None]
  - MYALGIA [None]
  - ROAD TRAFFIC ACCIDENT [None]
  - WEIGHT INCREASED [None]
